FAERS Safety Report 4815481-9 (Version None)
Quarter: 2005Q4

REPORT INFORMATION
  Report Type: 
  Country: None (occurrence: None)
  Receive Date: 20051028
  Receipt Date: 20051028
  Transmission Date: 20060501
  Serious: Yes (Hospitalization)
  Sender: FDA-Public Use
  Company Number: None

PATIENT
  Age: 49 Year
  Sex: Female
  Weight: 90.7194 kg

DRUGS (11)
  1. BYETTA [Suspect]
     Indication: DIABETES MELLITUS
     Dosage: 5 MG BID SQ
     Route: 058
     Dates: start: 20051020, end: 20051020
  2. ALTACE [Concomitant]
  3. DIOVAN HCT [Concomitant]
  4. HUMALOG [Concomitant]
  5. ACTOS [Concomitant]
  6. PLAVIX [Concomitant]
  7. LIPITOR [Concomitant]
  8. GLUCOPHAGE [Concomitant]
  9. IMURAN [Concomitant]
  10. ASPIRIN [Concomitant]
  11. PREVACID [Concomitant]

REACTIONS (3)
  - ANGIONEUROTIC OEDEMA [None]
  - NAUSEA [None]
  - SWOLLEN TONGUE [None]
